FAERS Safety Report 12402285 (Version 4)
Quarter: 2017Q2

REPORT INFORMATION
  Report Type: Spontaneous
  Country: US (occurrence: US)
  Receive Date: 20160525
  Receipt Date: 20170606
  Transmission Date: 20170830
  Serious: No
  Sender: FDA-Public Use
  Company Number: US-SA-2016SA022050

PATIENT
  Age: 67 Year
  Sex: Female
  Weight: 81.65 kg

DRUGS (10)
  1. LANTUS SOLOSTAR [Suspect]
     Active Substance: INSULIN GLARGINE
     Indication: TYPE 2 DIABETES MELLITUS
     Dosage: DOSE:40 UNIT(S)
     Route: 058
     Dates: start: 20050105
  2. POTASSIUM CHLORIDE. [Concomitant]
     Active Substance: POTASSIUM CHLORIDE
     Indication: HYPERTENSION
     Dates: start: 20050115
  3. ASPIRIN. [Concomitant]
     Active Substance: ASPIRIN
  4. SOLOSTAR [Suspect]
     Active Substance: DEVICE
     Indication: TYPE 2 DIABETES MELLITUS
     Dates: start: 1986
  5. METFORMIN [Concomitant]
     Active Substance: METFORMIN HYDROCHLORIDE
     Indication: HYPERTENSION
     Dosage: 1000MG
     Dates: start: 20050115
  6. AMLODIPINE/BENAZEPRIL [Concomitant]
     Indication: DIABETES MELLITUS
     Dates: start: 20050115
  7. LANTUS SOLOSTAR [Suspect]
     Active Substance: INSULIN GLARGINE
     Indication: TYPE 2 DIABETES MELLITUS
     Route: 065
     Dates: start: 1986
  8. SOLOSTAR [Suspect]
     Active Substance: DEVICE
     Indication: TYPE 2 DIABETES MELLITUS
     Dates: start: 20050105
  9. BENDROFLUMETHIAZIDE/NADOLOL [Concomitant]
     Indication: DIABETES MELLITUS
     Dosage: 5/40MG
     Dates: start: 20050115
  10. PRAVASTATIN. [Concomitant]
     Active Substance: PRAVASTATIN
     Indication: HYPERTENSION
     Dosage: 20MG
     Dates: start: 20050115

REACTIONS (2)
  - Injection site pain [Unknown]
  - Corrective lens user [Unknown]
